FAERS Safety Report 4943365-4 (Version None)
Quarter: 2006Q1

REPORT INFORMATION
  Report Type: 
  Country: None (occurrence: None)
  Receive Date: 20060309
  Receipt Date: 20060228
  Transmission Date: 20060701
  Serious: Yes (Other)
  Sender: FDA-Public Use
  Company Number: HQWYE101602MAR06

PATIENT
  Age: 77 Year
  Sex: Male
  Weight: 73 kg

DRUGS (1)
  1. MYLOTARG [Suspect]
     Indication: ACUTE MYELOID LEUKAEMIA
     Dosage: 16.5 MG 1X PER 1 DAY, INTRAVENOUS
     Route: 042
     Dates: start: 20050302, end: 20050302

REACTIONS (1)
  - BLOOD BILIRUBIN INCREASED [None]
